FAERS Safety Report 10451258 (Version 1)
Quarter: 2014Q3

REPORT INFORMATION
  Report Type: Spontaneous
  Country: US (occurrence: US)
  Receive Date: 20140912
  Receipt Date: 20140912
  Transmission Date: 20150326
  Serious: No
  Sender: FDA-Public Use
  Company Number: US-009507513-1407USA010132

PATIENT
  Age: 12 Year
  Sex: Female

DRUGS (1)
  1. DR. SCHOLL^S CLEAR AWAY PLANTAR PATCH [Suspect]
     Active Substance: SALICYLIC ACID
     Indication: SKIN PAPILLOMA
     Dosage: UNK, ONCE
     Route: 061
     Dates: start: 20140615

REACTIONS (3)
  - Unevaluable event [Not Recovered/Not Resolved]
  - Accidental exposure to product [Unknown]
  - Product adhesion issue [Unknown]

NARRATIVE: CASE EVENT DATE: 20140615
